FAERS Safety Report 12948603 (Version 1)
Quarter: 2016Q4

REPORT INFORMATION
  Report Type: Spontaneous
  Country: US (occurrence: US)
  Receive Date: 20161116
  Receipt Date: 20161116
  Transmission Date: 20170207
  Serious: No
  Sender: FDA-Public Use
  Company Number: US-BAUSCH-BL-2016-020096

PATIENT
  Age: 72 Year
  Sex: Female
  Weight: 68.1 kg

DRUGS (6)
  1. LOTEMAX [Suspect]
     Active Substance: LOTEPREDNOL ETABONATE
     Route: 047
  2. LOTEMAX [Suspect]
     Active Substance: LOTEPREDNOL ETABONATE
     Indication: DRY EYE
     Route: 047
     Dates: start: 201608, end: 20160818
  3. LEVOTHYROXINE. [Concomitant]
     Active Substance: LEVOTHYROXINE
     Indication: HYPOTHYROIDISM
  4. FISH OIL [Concomitant]
     Active Substance: FISH OIL
     Indication: SUPPLEMENTATION THERAPY
  5. METOPROLOL. [Concomitant]
     Active Substance: METOPROLOL
     Indication: HYPERTENSION
  6. REPHRESH TEARS [Concomitant]
     Indication: DRY EYE

REACTIONS (4)
  - Eye pain [Not Recovered/Not Resolved]
  - Drug ineffective for unapproved indication [Unknown]
  - Off label use [Unknown]
  - Ocular hyperaemia [Not Recovered/Not Resolved]

NARRATIVE: CASE EVENT DATE: 20160817
